FAERS Safety Report 4634819-9 (Version None)
Quarter: 2005Q2

REPORT INFORMATION
  Report Type: 
  Country: None (occurrence: None)
  Receive Date: 20050412
  Receipt Date: 20050330
  Transmission Date: 20051028
  Serious: Yes (Hospitalization)
  Sender: FDA-Public Use
  Company Number: 2005052118

PATIENT
  Age: 38 Year
  Sex: Female

DRUGS (4)
  1. SALAZOPYRIN [Suspect]
     Indication: COLITIS ULCERATIVE
     Dosage: ORAL
     Route: 048
     Dates: start: 20050101
  2. PREDNISONE [Concomitant]
  3. LACTOBACILLUS BIFIDUS, LYOPHILIZED [Concomitant]
  4. FAMOTIDINE [Concomitant]

REACTIONS (1)
  - COLITIS ULCERATIVE [None]
